FAERS Safety Report 6526718-2 (Version None)
Quarter: 2010Q1

REPORT INFORMATION
  Report Type: 
  Country: None (occurrence: None)
  Receive Date: 20100104
  Receipt Date: 20100104
  Transmission Date: 20100710
  Serious: Yes (Life-Threatening, Hospitalization, Disabling, Other)
  Sender: FDA-Public Use
  Company Number: None

PATIENT
  Sex: Male
  Weight: 87.5442 kg

DRUGS (2)
  1. HEPARIN - 1000 UNITS/ML 5000 UNIT BAXTER [Suspect]
     Indication: CARDIAC OPERATION
     Dates: start: 20080102, end: 20080110
  2. HEPARIN - 1000 UNITS/ML 5000 UNIT BAXTER [Suspect]
     Indication: ENDARTERECTOMY
     Dates: start: 20080102, end: 20080110

REACTIONS (2)
  - HEPARIN-INDUCED THROMBOCYTOPENIA [None]
  - MULTI-ORGAN FAILURE [None]
